FAERS Safety Report 20448394 (Version 1)
Quarter: 2022Q1

REPORT INFORMATION
  Report Type: Spontaneous
  Country: US (occurrence: US)
  Receive Date: 20220209
  Receipt Date: 20220209
  Transmission Date: 20220423
  Serious: No
  Sender: FDA-Public Use
  Company Number: US-BRISTOL-MYERS SQUIBB COMPANY-BMS-2022-014880

PATIENT
  Age: 19 Year
  Sex: Male
  Weight: 73.44 kg

DRUGS (4)
  1. ELIQUIS [Suspect]
     Active Substance: APIXABAN
     Indication: Pulmonary embolism
     Dosage: 5 MILLIGRAM, QD
     Route: 065
  2. COVID-19 VACCINE [Concomitant]
     Indication: COVID-19 immunisation
     Dosage: 0.3 MILLIGRAM
     Route: 030
     Dates: start: 20210422
  3. COVID-19 VACCINE [Concomitant]
     Dosage: 0.3 MILLIGRAM
     Route: 030
     Dates: start: 20210926
  4. COVID-19 VACCINE [Concomitant]
     Dosage: 0.3 MILLIGRAM
     Route: 030
     Dates: start: 20220125

REACTIONS (2)
  - Intentional product use issue [Unknown]
  - Asthma [Unknown]
